FAERS Safety Report 8541217-4 (Version None)
Quarter: 2012Q3

REPORT INFORMATION
  Report Type: 
  Country: None (occurrence: None)
  Receive Date: 20120726
  Receipt Date: 20120720
  Transmission Date: 20120928
  Serious: Yes (Hospitalization, Other)
  Sender: FDA-Public Use
  Company Number: KR-PFIZER INC-2012176351

PATIENT
  Age: 70 Year
  Sex: Male

DRUGS (5)
  1. LIPITOR [Suspect]
     Indication: HYPERLIPIDAEMIA
     Dosage: 20 MG, 1X/DAY
     Route: 048
     Dates: start: 20080101
  2. ATORVASTATIN [Suspect]
     Dosage: UNK
  3. RAXAR [Suspect]
     Dosage: UNK
  4. LIPITOR [Suspect]
     Dosage: 20 MG, 1X/DAY
     Route: 048
     Dates: end: 20120601
  5. METFORMIN HCL [Concomitant]

REACTIONS (12)
  - BLOOD PRESSURE INADEQUATELY CONTROLLED [None]
  - EYE PAIN [None]
  - DIZZINESS [None]
  - PARAESTHESIA [None]
  - SENSITIVITY OF TEETH [None]
  - DIABETES MELLITUS [None]
  - DRUG INEFFECTIVE [None]
  - RASH GENERALISED [None]
  - ERECTILE DYSFUNCTION [None]
  - OEDEMA PERIPHERAL [None]
  - HAEMATURIA [None]
  - NEPHROLITHIASIS [None]
